FAERS Safety Report 22009922 (Version 2)
Quarter: 2023Q1

REPORT INFORMATION
  Report Type: Spontaneous
  Country: CN (occurrence: None)
  Receive Date: 20230220
  Receipt Date: 20230223
  Transmission Date: 20230418
  Serious: Yes (Life-Threatening, Other)
  Sender: FDA-Public Use
  Company Number: CN-ROCHE-3287242

PATIENT
  Age: 33 Year
  Sex: Male
  Weight: 55 kg

DRUGS (8)
  1. TECENTRIQ [Suspect]
     Active Substance: ATEZOLIZUMAB
     Indication: Hepatic cancer
     Route: 041
     Dates: start: 20230214
  2. AVASTIN [Suspect]
     Active Substance: BEVACIZUMAB
     Indication: Hepatic cancer
     Route: 065
  3. SINTILIMAB [Concomitant]
     Active Substance: SINTILIMAB
     Indication: Hepatic cancer
  4. DEXAMETHASONE [Concomitant]
     Active Substance: DEXAMETHASONE
     Indication: Hepatic cancer
     Dates: start: 20230214
  5. EPIRUBICIN [Concomitant]
     Active Substance: EPIRUBICIN
     Indication: Hepatic cancer
     Dates: start: 20230213
  6. OXALIPLATIN [Concomitant]
     Active Substance: OXALIPLATIN
     Indication: Hepatic cancer
     Dates: start: 20230213
  7. LEUCOVORIN CALCIUM [Concomitant]
     Active Substance: LEUCOVORIN CALCIUM
     Indication: Hepatic cancer
     Dates: start: 20230213
  8. FLUOROURACIL [Concomitant]
     Active Substance: FLUOROURACIL
     Indication: Hepatic cancer
     Dates: start: 20230213

REACTIONS (4)
  - Dizziness [Unknown]
  - Seizure [Recovering/Resolving]
  - Palpitations [Recovering/Resolving]
  - Blood pressure increased [Recovering/Resolving]

NARRATIVE: CASE EVENT DATE: 20230214
